FAERS Safety Report 5730294-1 (Version None)
Quarter: 2008Q2

REPORT INFORMATION
  Report Type: 
  Country: None (occurrence: None)
  Receive Date: 20080505
  Receipt Date: 20080505
  Transmission Date: 20081010
  Serious: Yes (Other)
  Sender: FDA-Public Use
  Company Number: None

PATIENT
  Sex: Female
  Weight: 90.7194 kg

DRUGS (1)
  1. EFFEXOR [Suspect]
     Dosage: 75MG ONCE DAILY PO 5 TO 6 YEARS
     Route: 048

REACTIONS (1)
  - DRUG WITHDRAWAL SYNDROME [None]
